FAERS Safety Report 15662724 (Version 2)
Quarter: 2018Q4

REPORT INFORMATION
  Report Type: Report from Study
  Country: None (occurrence: BR)
  Receive Date: 20181127
  Receipt Date: 20181128
  Transmission Date: 20190205
  Serious: Yes (Hospitalization)
  Sender: FDA-Public Use
  Company Number: BR-ABBVIE-18K-020-2570067-00

PATIENT
  Age: 47 Year
  Sex: Female
  Weight: 72 kg

DRUGS (1)
  1. HUMIRA [Suspect]
     Active Substance: ADALIMUMAB
     Indication: ANKYLOSING SPONDYLITIS
     Route: 058
     Dates: start: 20181113

REACTIONS (3)
  - Immunodeficiency [Unknown]
  - Pain [Unknown]
  - Tuberculosis [Unknown]

NARRATIVE: CASE EVENT DATE: 201811
